FAERS Safety Report 9400290 (Version 1)
Quarter: 2013Q3

REPORT INFORMATION
  Report Type: Spontaneous
  Country: GB (occurrence: None)
  Receive Date: 20130702
  Receipt Date: 20130702
  Transmission Date: 20140515
  Serious: Yes (Death, Other)
  Sender: FDA-Public Use
  Company Number: AUR-APL-2013-05504

PATIENT
  Age: 46 Year
  Sex: Male
  Weight: 111.9 kg

DRUGS (5)
  1. SERTRALINE [Suspect]
     Indication: DEPRESSION
     Dosage: 200 MG (200 MG, 1 IN 1 D), ORAL
     Route: 048
     Dates: start: 2000
  2. ZAPONEX [Suspect]
     Indication: SCHIZOPHRENIA, PARANOID TYPE
     Dosage: 600 MG (300 MG, 2 IN 1 D), ORAL
     Route: 048
     Dates: start: 20090626, end: 20121116
  3. AMISULPRIDE (AMISULPRIDE) [Concomitant]
  4. SIMVASTATIN (SIMVASTATIN) [Concomitant]
  5. VALPROATE SODIUM (VALPROATE SODIUM) [Concomitant]

REACTIONS (11)
  - Sudden death [None]
  - Drowning [None]
  - Coronary artery stenosis [None]
  - Arteriosclerosis coronary artery [None]
  - Arteriosclerosis [None]
  - Brain oedema [None]
  - Emphysema [None]
  - Intentional overdose [None]
  - Completed suicide [None]
  - Bereavement [None]
  - Death of relative [None]
